FAERS Safety Report 12006389 (Version 2)
Quarter: 2017Q1

REPORT INFORMATION
  Report Type: Spontaneous
  Country: US (occurrence: US)
  Receive Date: 20160204
  Receipt Date: 20170208
  Transmission Date: 20170428
  Serious: Yes (Other)
  Sender: FDA-Public Use
  Company Number: US-ELI_LILLY_AND_COMPANY-US201601009688

PATIENT
  Sex: Female
  Weight: 62 kg

DRUGS (2)
  1. SYNTHROID [Concomitant]
     Active Substance: LEVOTHYROXINE SODIUM
     Indication: HYPOTHYROIDISM
     Dosage: 25 UG, UNKNOWN
     Route: 065
  2. CYMBALTA [Suspect]
     Active Substance: DULOXETINE HYDROCHLORIDE
     Indication: DEPRESSION
     Dosage: 30 MG, UNKNOWN
     Route: 065
     Dates: start: 200909

REACTIONS (26)
  - Agitation [Unknown]
  - Migraine [Unknown]
  - Seizure [Unknown]
  - Nausea [Unknown]
  - Paraesthesia [Unknown]
  - Memory impairment [Unknown]
  - Headache [Unknown]
  - Anxiety [Unknown]
  - Influenza like illness [Unknown]
  - Vomiting [Unknown]
  - Aggression [Unknown]
  - Nightmare [Unknown]
  - Irritability [Unknown]
  - Staring [Unknown]
  - Suicidal ideation [Unknown]
  - Fatigue [Unknown]
  - Affect lability [Unknown]
  - Disturbance in attention [Unknown]
  - Dizziness [Unknown]
  - Sleep disorder [Unknown]
  - Confusional state [Unknown]
  - Vertigo [Unknown]
  - Dysphoria [Unknown]
  - Somnolence [Unknown]
  - Insomnia [Unknown]
  - Withdrawal syndrome [Unknown]
